FAERS Safety Report 4300728-8 (Version None)
Quarter: 2004Q1

REPORT INFORMATION
  Report Type: 
  Country: None (occurrence: None)
  Receive Date: 20040218
  Receipt Date: 20040205
  Transmission Date: 20041129
  Serious: Yes (Other)
  Sender: FDA-Public Use
  Company Number: US-JNJFOC-20040200132

PATIENT
  Age: 62 Year
  Sex: Female
  Weight: 96.1626 kg

DRUGS (3)
  1. REMICADE [Suspect]
     Indication: RHEUMATOID ARTHRITIS
     Dosage: SEE IMAGE
     Route: 041
     Dates: start: 20021017
  2. REMICADE [Suspect]
     Indication: RHEUMATOID ARTHRITIS
     Dosage: SEE IMAGE
     Route: 041
     Dates: start: 20031028
  3. METHOTREXATE [Concomitant]

REACTIONS (3)
  - DRUG TOLERANCE DECREASED [None]
  - EXTRANODAL MARGINAL ZONE B-CELL LYMPHOMA (MALT TYPE) [None]
  - INJECTION SITE REACTION [None]
